FAERS Safety Report 22156625 (Version 1)
Quarter: 2023Q1

REPORT INFORMATION
  Report Type: Spontaneous
  Country: FR (occurrence: None)
  Receive Date: 20230330
  Receipt Date: 20230330
  Transmission Date: 20230418
  Serious: Yes (Disabling)
  Sender: FDA-Public Use
  Company Number: None

PATIENT
  Age: 45 Year
  Sex: Male

DRUGS (2)
  1. METFORMIN [Suspect]
     Active Substance: METFORMIN HYDROCHLORIDE
     Indication: Type 2 diabetes mellitus
     Dosage: 500 MG 2/D
     Route: 048
     Dates: start: 20230112
  2. OZEMPIC [Suspect]
     Active Substance: SEMAGLUTIDE
     Indication: Type 2 diabetes mellitus
     Dosage: SOLUTION FOR INJECTION IN PRE-FILLED PEN 0.25 MG/WEEK
     Route: 058
     Dates: start: 20230112

REACTIONS (2)
  - Paraesthesia [Recovering/Resolving]
  - Areflexia [Recovering/Resolving]

NARRATIVE: CASE EVENT DATE: 20230118
